FAERS Safety Report 22207294 (Version 1)
Quarter: 2023Q2

REPORT INFORMATION
  Report Type: Spontaneous
  Country: US (occurrence: None)
  Receive Date: 20230413
  Receipt Date: 20230413
  Transmission Date: 20230722
  Serious: No
  Sender: FDA-Public Use
  Company Number: None

PATIENT

DRUGS (1)
  1. OZEMPIC [Suspect]
     Active Substance: SEMAGLUTIDE

REACTIONS (4)
  - Device malfunction [None]
  - Product dispensing error [None]
  - Device failure [None]
  - Product formulation issue [None]

NARRATIVE: CASE EVENT DATE: 20230315
